FAERS Safety Report 18545288 (Version 2)
Quarter: 2021Q2

REPORT INFORMATION
  Report Type: Report from Study
  Country: CA (occurrence: CA)
  Receive Date: 20201125
  Receipt Date: 20210521
  Transmission Date: 20210717
  Serious: Yes (Other)
  Sender: FDA-Public Use
  Company Number: CA-SHIRE-CA202007465

PATIENT
  Age: 30 Year
  Sex: Male

DRUGS (7)
  1. FIRAZYR [Suspect]
     Active Substance: ICATIBANT ACETATE
     Indication: HEREDITARY ANGIOEDEMA
     Dosage: 30 MG/3ML, AS REQ^D
     Route: 065
     Dates: start: 20180912
  2. FIRAZYR [Suspect]
     Active Substance: ICATIBANT ACETATE
     Indication: HEREDITARY ANGIOEDEMA
     Dosage: 30 MG/3ML, AS REQ^D
     Route: 065
     Dates: start: 20180912
  3. FIRAZYR [Suspect]
     Active Substance: ICATIBANT ACETATE
     Dosage: 30 MG/3ML
     Route: 065
     Dates: start: 20180912
  4. FIRAZYR [Suspect]
     Active Substance: ICATIBANT ACETATE
     Dosage: 30 MG/3ML
     Route: 065
     Dates: start: 20180912
  5. DANAZOL. [Concomitant]
     Active Substance: DANAZOL
     Indication: PRODUCT USED FOR UNKNOWN INDICATION
     Dosage: 200 MILLIGRAM, 1X/2WKS
     Route: 065
     Dates: start: 20090101
  6. LANADELUMAB [Suspect]
     Active Substance: LANADELUMAB
     Indication: HEREDITARY ANGIOEDEMA WITH C1 ESTERASE INHIBITOR DEFICIENCY
     Dosage: 300 MILLIGRAM, Q2WEEKS
     Route: 058
     Dates: start: 20200209
  7. LANADELUMAB [Suspect]
     Active Substance: LANADELUMAB
     Dosage: 300 MILLIGRAM, 1X/2WKS
     Route: 058
     Dates: start: 20200405

REACTIONS (11)
  - Hereditary angioedema [Unknown]
  - Burning sensation [Recovered/Resolved]
  - Injection site pruritus [Unknown]
  - Ear infection [Unknown]
  - Bronchitis [Unknown]
  - Injection site rash [Recovered/Resolved]
  - Medication error [Unknown]
  - Urticaria [Not Recovered/Not Resolved]
  - Injection site erythema [Recovered/Resolved]
  - Rash pruritic [Not Recovered/Not Resolved]
  - Injection site pain [Recovered/Resolved]

NARRATIVE: CASE EVENT DATE: 20210510
